FAERS Safety Report 6648402-7 (Version None)
Quarter: 2010Q1

REPORT INFORMATION
  Report Type: 
  Country: None (occurrence: None)
  Receive Date: 20100319
  Receipt Date: 20100305
  Transmission Date: 20100710
  Serious: Yes (Hospitalization)
  Sender: FDA-Public Use
  Company Number: 008790

PATIENT

DRUGS (1)
  1. ISOSORBIDE MONONITRATE (MONO CEDOCARD RETARD CAPSULES) [Suspect]
     Dosage: (ORAL)
     Route: 048
     Dates: start: 20090101

REACTIONS (2)
  - HEADACHE [None]
  - INTRACRANIAL PRESSURE INCREASED [None]
